FAERS Safety Report 11695782 (Version 1)
Quarter: 2015Q4

REPORT INFORMATION
  Report Type: Spontaneous
  Country: US (occurrence: None)
  Receive Date: 20151103
  Receipt Date: 20151103
  Transmission Date: 20160304
  Serious: Yes (Disabling)
  Sender: FDA-Public Use
  Company Number: None

PATIENT
  Age: 3 Month
  Sex: Female

DRUGS (1)
  1. CLOMID [Suspect]
     Active Substance: CLOMIPHENE CITRATE
     Indication: ANOVULATORY CYCLE
     Route: 048

REACTIONS (5)
  - Dysplasia [None]
  - Hip deformity [None]
  - Limb deformity [None]
  - Autism [None]
  - Dwarfism [None]
